FAERS Safety Report 7326503-8 (Version None)
Quarter: 2011Q1

REPORT INFORMATION
  Report Type: 
  Country: None (occurrence: None)
  Receive Date: 20110302
  Receipt Date: 20110223
  Transmission Date: 20110831
  Serious: Yes (Other)
  Sender: FDA-Public Use
  Company Number: US-US-EMD SERONO, INC.-232869J10USA

PATIENT
  Sex: Male

DRUGS (6)
  1. BACLOFEN [Concomitant]
     Route: 065
  2. REQUIP [Concomitant]
     Route: 065
  3. AMPYRA [Concomitant]
     Dates: end: 20100901
  4. PROVIGIL [Concomitant]
     Indication: ASTHENIA
     Route: 065
     Dates: end: 20100101
  5. REBIF [Suspect]
     Indication: MULTIPLE SCLEROSIS
     Route: 058
     Dates: start: 20090819, end: 20100101
  6. PROVIGIL [Concomitant]
     Indication: FATIGUE
     Dates: start: 20100101

REACTIONS (7)
  - SKIN DISCOLOURATION [None]
  - VARICOSE VEIN [None]
  - ATRIAL FLUTTER [None]
  - CONTUSION [None]
  - OEDEMA PERIPHERAL [None]
  - PURPURA [None]
  - FATIGUE [None]
